FAERS Safety Report 8985448 (Version 2)
Quarter: 2013Q1

REPORT INFORMATION
  Report Type: Spontaneous
  Country: US (occurrence: US)
  Receive Date: 20121226
  Receipt Date: 20130131
  Transmission Date: 20140127
  Serious: Yes (Hospitalization)
  Sender: FDA-Public Use
  Company Number: US-JNJFOC-20121209033

PATIENT
  Age: 75 Year
  Sex: Female
  Weight: 69 kg

DRUGS (19)
  1. XARELTO [Suspect]
     Indication: THROMBOSIS PROPHYLAXIS
     Route: 048
     Dates: start: 20121127, end: 20121211
  2. XARELTO [Suspect]
     Indication: THROMBOSIS PROPHYLAXIS
     Route: 048
     Dates: start: 20121127, end: 20121211
  3. XARELTO [Suspect]
     Indication: THROMBOSIS PROPHYLAXIS
     Route: 048
     Dates: start: 20121127, end: 20121211
  4. XARELTO [Suspect]
     Indication: KNEE ARTHROPLASTY
     Route: 048
     Dates: start: 20121127, end: 20121211
  5. TYLENOL [Concomitant]
     Indication: ARTHRALGIA
     Dosage: EVERY 4 HOURS
     Route: 065
  6. MAXIDE [Concomitant]
     Indication: HYPERTENSION
     Route: 065
  7. VERAPAMIL [Concomitant]
     Indication: HYPERTENSION
     Route: 065
  8. MICARDIS [Concomitant]
     Indication: HYPERTENSION
     Route: 065
  9. ISOSORBIDE [Concomitant]
     Indication: HYPERTENSION
     Route: 065
  10. METHYLDOPA [Concomitant]
     Route: 065
  11. NEXIUM [Concomitant]
     Indication: GASTROOESOPHAGEAL REFLUX DISEASE
     Route: 065
  12. SYNTHROID [Concomitant]
     Indication: HYPOTHYROIDISM
     Route: 065
  13. PRAVASTATIN [Concomitant]
     Indication: HYPERCHOLESTEROLAEMIA
     Route: 065
  14. ZOLOFT [Concomitant]
     Indication: DEPRESSION
     Route: 065
  15. PROVENTIL [Concomitant]
     Indication: ASTHMA
     Route: 055
  16. PLAVIX [Concomitant]
     Indication: LEFT VENTRICULAR DYSFUNCTION
     Route: 065
  17. ROFLUMILAST [Concomitant]
     Indication: CHRONIC OBSTRUCTIVE PULMONARY DISEASE
     Route: 065
  18. PULMICORT [Concomitant]
     Indication: CHRONIC OBSTRUCTIVE PULMONARY DISEASE
     Dosage: 0.5 MG/2 ML
     Route: 065
  19. FORMOTEROL [Concomitant]
     Indication: CHRONIC OBSTRUCTIVE PULMONARY DISEASE
     Dosage: 20 MCG/2ML
     Route: 065

REACTIONS (2)
  - Pulmonary embolism [Recovering/Resolving]
  - Drug ineffective [Unknown]
